FAERS Safety Report 21463858 (Version 1)
Quarter: 2022Q4

REPORT INFORMATION
  Report Type: Spontaneous
  Country: FR (occurrence: FR)
  Receive Date: 20221017
  Receipt Date: 20221017
  Transmission Date: 20230113
  Serious: Yes (Hospitalization)
  Sender: FDA-Public Use
  Company Number: None

PATIENT
  Age: 56 Year
  Sex: Male
  Weight: 86 kg

DRUGS (9)
  1. OFLOXACIN [Suspect]
     Active Substance: OFLOXACIN
     Indication: Arthritis bacterial
     Route: 048
     Dates: start: 20220923, end: 20220927
  2. RIFAMPIN [Suspect]
     Active Substance: RIFAMPIN
     Indication: Arthritis bacterial
     Route: 048
     Dates: start: 20220923
  3. ZOPICLONE [Concomitant]
     Active Substance: ZOPICLONE
  4. ONDANSETRON [Concomitant]
     Active Substance: ONDANSETRON
  5. DUPHALAC [Concomitant]
     Active Substance: LACTULOSE
  6. NAPROXEN [Concomitant]
     Active Substance: NAPROXEN
  7. MORPHINE SULFATE [Concomitant]
     Active Substance: MORPHINE SULFATE
  8. RIFAMPIN [Concomitant]
     Active Substance: RIFAMPIN
  9. MOVICOL [Concomitant]
     Active Substance: POLYETHYLENE GLYCOL 3350\POTASSIUM CHLORIDE\SODIUM BICARBONATE\SODIUM CHLORIDE

REACTIONS (1)
  - Tendon disorder [Not Recovered/Not Resolved]

NARRATIVE: CASE EVENT DATE: 20220927
